FAERS Safety Report 6460277-8 (Version None)
Quarter: 2009Q4

REPORT INFORMATION
  Report Type: 
  Country: None (occurrence: None)
  Receive Date: 20091130
  Receipt Date: 20091118
  Transmission Date: 20100525
  Serious: Yes (Hospitalization)
  Sender: FDA-Public Use
  Company Number: PHHY2009IE45417

PATIENT
  Sex: Female
  Weight: 66 kg

DRUGS (5)
  1. RASILEZ [Suspect]
     Indication: HYPERTENSION
     Dosage: 150 MG, UNK
     Route: 048
  2. RASILEZ [Suspect]
     Dosage: 300 MG, UNK
     Route: 048
     Dates: start: 20090527, end: 20090606
  3. ACE INHIBITOR NOS [Concomitant]
  4. CENTYL [Concomitant]
     Indication: HYPERTENSION
     Dosage: 2.5 MG
     Route: 048
  5. NU-SEALS ASPIRIN [Concomitant]
     Indication: PROPHYLAXIS
     Dosage: 75 MG
     Route: 048

REACTIONS (5)
  - ABASIA [None]
  - AMNESIA [None]
  - ASTHENIA [None]
  - ORTHOSTATIC HYPOTENSION [None]
  - SYNCOPE [None]
